FAERS Safety Report 25986227 (Version 1)
Quarter: 2025Q4

REPORT INFORMATION
  Report Type: Spontaneous
  Country: US (occurrence: US)
  Receive Date: 20251102
  Receipt Date: 20251102
  Transmission Date: 20260117
  Serious: No
  Sender: ELI LILLY AND COMPANY
  Company Number: US-ELI_LILLY_AND_COMPANY-US202510020773

PATIENT
  Age: 56 Year
  Sex: Female

DRUGS (2)
  1. ZEPBOUND [Suspect]
     Active Substance: TIRZEPATIDE
     Indication: Weight control
     Dosage: 2.5 MG, UNKNOWN
     Route: 065
     Dates: start: 20250905
  2. ZEPBOUND [Suspect]
     Active Substance: TIRZEPATIDE
     Dosage: 5 MG, UNKNOWN
     Route: 065

REACTIONS (7)
  - Food intolerance [Unknown]
  - Dairy intolerance [Unknown]
  - Weight increased [Unknown]
  - Incorrect dose administered [Unknown]
  - Abdominal distension [Unknown]
  - Nausea [Unknown]
  - Constipation [Unknown]

NARRATIVE: CASE EVENT DATE: 20250101
